FAERS Safety Report 21507994 (Version 1)
Quarter: 2022Q4

REPORT INFORMATION
  Report Type: Spontaneous
  Country: CN (occurrence: None)
  Receive Date: 20221026
  Receipt Date: 20221026
  Transmission Date: 20230113
  Serious: Yes (Hospitalization, Other)
  Sender: FDA-Public Use
  Company Number: None

PATIENT
  Age: 74 Year
  Sex: Female

DRUGS (6)
  1. SELEGILINE HYDROCHLORIDE [Suspect]
     Active Substance: SELEGILINE HYDROCHLORIDE
     Indication: Parkinson^s disease
     Dosage: 10 MG/DAY
     Route: 048
  2. SELEGILINE HYDROCHLORIDE [Suspect]
     Active Substance: SELEGILINE HYDROCHLORIDE
     Dosage: 30 MG/DAY FOR 3 CONSECUTIVE DAYS
     Route: 048
  3. BENSERAZIDE HYDROCHLORIDE\LEVODOPA [Suspect]
     Active Substance: BENSERAZIDE HYDROCHLORIDE\LEVODOPA
     Indication: Parkinson^s disease
     Dosage: 1500 MG/DAY FOR 3 CONSECUTIVE DAYS
     Route: 048
  4. BENSERAZIDE HYDROCHLORIDE\LEVODOPA [Suspect]
     Active Substance: BENSERAZIDE HYDROCHLORIDE\LEVODOPA
     Dosage: 62.5 MG
     Route: 048
  5. BENSERAZIDE HYDROCHLORIDE\LEVODOPA [Suspect]
     Active Substance: BENSERAZIDE HYDROCHLORIDE\LEVODOPA
     Dosage: 250 MG/DAY
     Route: 048
  6. PIRIBEDIL [Concomitant]
     Active Substance: PIRIBEDIL
     Indication: Parkinson^s disease
     Dosage: 150 MG/DAY
     Route: 048

REACTIONS (2)
  - Dyskinesia hyperpyrexia syndrome [Recovered/Resolved]
  - Drug abuse [Unknown]
